FAERS Safety Report 20229768 (Version 1)
Quarter: 2021Q4

REPORT INFORMATION
  Report Type: Spontaneous
  Country: US (occurrence: US)
  Receive Date: 20211226
  Receipt Date: 20211226
  Transmission Date: 20220303
  Serious: No
  Sender: FDA-Public Use
  Company Number: US-ABBVIE-21K-163-4092025-00

PATIENT
  Age: 72 Year
  Sex: Female
  Weight: 131.66 kg

DRUGS (1)
  1. SKYRIZI [Suspect]
     Active Substance: RISANKIZUMAB-RZAA
     Indication: Psoriasis
     Route: 058
     Dates: start: 2020

REACTIONS (2)
  - Psoriasis [Not Recovered/Not Resolved]
  - Therapeutic response shortened [Not Recovered/Not Resolved]

NARRATIVE: CASE EVENT DATE: 20210101
